FAERS Safety Report 20708630 (Version 1)
Quarter: 2022Q2

REPORT INFORMATION
  Report Type: Spontaneous
  Country: IN (occurrence: IN)
  Receive Date: 20220414
  Receipt Date: 20220414
  Transmission Date: 20220721
  Serious: Yes (Other)
  Sender: FDA-Public Use
  Company Number: IN-SUN PHARMACEUTICAL INDUSTRIES LTD-2022R1-331632

PATIENT
  Age: 73 Year
  Sex: Male

DRUGS (1)
  1. PRAMIPEXOLE [Suspect]
     Active Substance: PRAMIPEXOLE
     Indication: Parkinson^s disease
     Dosage: UNK
     Route: 065

REACTIONS (5)
  - Impulse-control disorder [Unknown]
  - Aggression [Unknown]
  - Drug abuse [Unknown]
  - Hallucination, visual [Unknown]
  - Hypersexuality [Unknown]
